FAERS Safety Report 5405664-1 (Version None)
Quarter: 2007Q3

REPORT INFORMATION
  Report Type: 
  Country: None (occurrence: None)
  Receive Date: 20070806
  Receipt Date: 20070725
  Transmission Date: 20080115
  Serious: Yes (Other)
  Sender: FDA-Public Use
  Company Number: PHHO2007BR10036

PATIENT
  Age: 20 Year
  Sex: Male
  Weight: 51.5 kg

DRUGS (2)
  1. CERTICAN [Suspect]
     Indication: RENAL TRANSPLANT
     Dosage: 1.5 MG, BID
     Route: 048
     Dates: start: 20070607
  2. NEORAL [Suspect]

REACTIONS (9)
  - BLOOD CREATININE INCREASED [None]
  - DRUG INTERACTION [None]
  - DYSPNOEA [None]
  - FLUID OVERLOAD [None]
  - LYMPHOCELE [None]
  - NEPHROPATHY TOXIC [None]
  - OEDEMA [None]
  - RENAL IMPAIRMENT [None]
  - SURGERY [None]
